FAERS Safety Report 8974607 (Version 3)
Quarter: 2013Q1

REPORT INFORMATION
  Report Type: Spontaneous
  Country: JP (occurrence: JP)
  Receive Date: 20121219
  Receipt Date: 20130228
  Transmission Date: 20140127
  Serious: Yes (Hospitalization)
  Sender: FDA-Public Use
  Company Number: JP-ELI_LILLY_AND_COMPANY-JP201212003780

PATIENT
  Age: 77 Year
  Sex: Female
  Weight: 63 kg

DRUGS (11)
  1. BYETTA [Suspect]
     Indication: DIABETES MELLITUS
     Dosage: 5 UG, BID
     Route: 058
     Dates: start: 20121204, end: 20121210
  2. AMARYL [Concomitant]
     Dosage: 3 MG, QD
     Route: 048
     Dates: start: 20121204, end: 20121206
  3. AMARYL [Concomitant]
     Dosage: 1 MG, QD
     Route: 048
     Dates: start: 20121207, end: 20121210
  4. MEVALOTIN [Concomitant]
     Indication: HYPERLIPIDAEMIA
     Dosage: 10 MG, QD
     Route: 048
     Dates: start: 20060529
  5. NATRIX [Concomitant]
     Indication: HYPERTENSION
     Dosage: 1 MG, QD
     Route: 048
     Dates: start: 20120314, end: 20121210
  6. ALLELOCK [Concomitant]
     Indication: ASTHMA
     Dosage: 5 MG, BID
     Route: 048
     Dates: start: 20071017, end: 20121210
  7. GASTER D [Concomitant]
     Indication: PROPHYLAXIS
     Dosage: 20 MG, BID
     Route: 048
     Dates: start: 20070813
  8. POLLAKISU [Concomitant]
     Dosage: 2 MG, TID
     Route: 048
     Dates: start: 20121017, end: 20121210
  9. SLOW K [Concomitant]
     Indication: BLOOD POTASSIUM DECREASED
     Dosage: 600 MG, TID
     Route: 048
     Dates: start: 20121024, end: 20121210
  10. RHYTHMY [Concomitant]
     Indication: INSOMNIA
     Dosage: 0.5 DF, QD
     Route: 048
     Dates: start: 20080604
  11. CARDENALIN [Concomitant]
     Indication: HYPERTENSION
     Dosage: 0.25 DF, QD
     Route: 048
     Dates: start: 20121126

REACTIONS (6)
  - Hyponatraemia [Recovered/Resolved]
  - Blood creatinine increased [Unknown]
  - Blood creatine phosphokinase increased [Unknown]
  - Hypoglycaemia [Unknown]
  - Nausea [Unknown]
  - Hypophagia [Unknown]
